FAERS Safety Report 19636336 (Version 2)
Quarter: 2022Q1

REPORT INFORMATION
  Report Type: Spontaneous
  Country: US (occurrence: US)
  Receive Date: 20210730
  Receipt Date: 20220228
  Transmission Date: 20220423
  Serious: Yes (Death, Hospitalization, Other)
  Sender: FDA-Public Use
  Company Number: US-GLAXOSMITHKLINE-US2021GSK163228

PATIENT
  Sex: Male

DRUGS (6)
  1. ZANTAC [Suspect]
     Active Substance: RANITIDINE HYDROCHLORIDE
     Indication: Dyspepsia
     Dosage: 150 MG, QD
     Route: 065
     Dates: start: 2000, end: 2012
  2. ZANTAC [Suspect]
     Active Substance: RANITIDINE HYDROCHLORIDE
     Indication: Gastrooesophageal reflux disease
     Dosage: 300 MG, BID
     Route: 048
     Dates: start: 20080416
  3. ZANTAC [Suspect]
     Active Substance: RANITIDINE HYDROCHLORIDE
     Indication: Nausea
     Dosage: 150 MG
     Route: 048
     Dates: start: 20100726, end: 20141011
  4. ZANTAC [Suspect]
     Active Substance: RANITIDINE HYDROCHLORIDE
     Dosage: 150 MG, BID
     Route: 048
     Dates: start: 20101203
  5. ZANTAC [Suspect]
     Active Substance: RANITIDINE HYDROCHLORIDE
     Indication: Dyspepsia
     Dosage: 150 MG, QD
     Route: 065
     Dates: start: 2000, end: 2012
  6. RANITIDINE HYDROCHLORIDE [Suspect]
     Active Substance: RANITIDINE HYDROCHLORIDE
     Indication: Product used for unknown indication
     Dosage: 300 MG, BID
     Route: 048

REACTIONS (14)
  - Pancreatic carcinoma metastatic [Fatal]
  - Metastases to lung [Fatal]
  - Metastases to liver [Fatal]
  - Metastases to abdominal cavity [Fatal]
  - Pancreatic mass [Unknown]
  - Pancreatic carcinoma [Unknown]
  - Adenocarcinoma pancreas [Unknown]
  - Pancreatitis chronic [Unknown]
  - Pancreatic carcinoma metastatic [Unknown]
  - Pancreatic duct dilatation [Unknown]
  - Pancreatic duct obstruction [Unknown]
  - Pancreatic cyst [Unknown]
  - Pancreatic neoplasm [Unknown]
  - Benign pancreatic neoplasm [Unknown]
